FAERS Safety Report 11688691 (Version 1)
Quarter: 2015Q4

REPORT INFORMATION
  Report Type: Report from Study
  Country: US (occurrence: US)
  Receive Date: 20151102
  Receipt Date: 20151102
  Transmission Date: 20160304
  Serious: No
  Sender: FDA-Public Use
  Company Number: US-AMGEN-USASL2015111473

PATIENT
  Age: 41 Year
  Sex: Female

DRUGS (1)
  1. ENBREL [Suspect]
     Active Substance: ETANERCEPT
     Indication: ANKYLOSING SPONDYLITIS
     Dosage: UNK UNK, QWK
     Route: 065

REACTIONS (10)
  - Pain in extremity [Unknown]
  - Headache [Unknown]
  - Epistaxis [Unknown]
  - Limb discomfort [Unknown]
  - Injection site pruritus [Unknown]
  - Arthralgia [Unknown]
  - Peripheral swelling [Unknown]
  - Lethargy [Unknown]
  - Injection site erythema [Unknown]
  - Pyrexia [Recovering/Resolving]

NARRATIVE: CASE EVENT DATE: 201510
